FAERS Safety Report 16721906 (Version 3)
Quarter: 2019Q3

REPORT INFORMATION
  Report Type: Report from Study
  Country: US (occurrence: US)
  Receive Date: 20190820
  Receipt Date: 20190930
  Transmission Date: 20191005
  Serious: Yes (Hospitalization)
  Sender: FDA-Public Use
  Company Number: US-ACTELION-A-NJ2019-190020

PATIENT
  Age: 51 Year
  Sex: Female
  Weight: 62.13 kg

DRUGS (5)
  1. ADEMPAS [Concomitant]
     Active Substance: RIOCIGUAT
     Dosage: 2.5 MG, TID
  2. AMLODIPINE [Concomitant]
     Active Substance: AMLODIPINE BESYLATE
  3. UPTRAVI [Suspect]
     Active Substance: SELEXIPAG
     Indication: PULMONARY HYPERTENSION
     Dosage: 1000 MCG QAM. 1200 MCG IN THE EVENING
     Route: 048
  4. UPTRAVI [Suspect]
     Active Substance: SELEXIPAG
     Dosage: 1200 MCG, BID
     Route: 048
  5. OXYGEN. [Concomitant]
     Active Substance: OXYGEN

REACTIONS (36)
  - Abdominal distension [Unknown]
  - Rash [Unknown]
  - Productive cough [Unknown]
  - Abdominal discomfort [Unknown]
  - Infection parasitic [Unknown]
  - Cough [Unknown]
  - Decreased appetite [Unknown]
  - Malaise [Unknown]
  - Condition aggravated [Unknown]
  - Infection [Unknown]
  - Product dose omission [Unknown]
  - Vomiting [Unknown]
  - Dyspnoea [Unknown]
  - Hospitalisation [Unknown]
  - Helminthic infection [Unknown]
  - Asthenia [Unknown]
  - Scleroderma [Unknown]
  - Skin discolouration [Unknown]
  - Pulmonary hypertension [Recovered/Resolved]
  - Gastroenteritis [Unknown]
  - Nausea [Unknown]
  - Chest pain [Recovered/Resolved]
  - Dizziness [Unknown]
  - Diarrhoea [Recovered/Resolved]
  - Unevaluable event [Unknown]
  - Paraesthesia [Unknown]
  - Fatigue [Unknown]
  - Nasopharyngitis [Unknown]
  - Pain in extremity [Unknown]
  - Small intestinal obstruction [Recovered/Resolved]
  - Pericardial effusion [Unknown]
  - Anaemia [Unknown]
  - Food poisoning [Unknown]
  - Constipation [Recovered/Resolved]
  - Peripheral swelling [Unknown]
  - Sinus congestion [Unknown]

NARRATIVE: CASE EVENT DATE: 20190418
